FAERS Safety Report 10417904 (Version 1)
Quarter: 2014Q2

REPORT INFORMATION
  Report Type: Spontaneous
  Country: US (occurrence: None)
  Receive Date: 20140613
  Receipt Date: 20140613
  Transmission Date: 20141212
  Serious: Yes (Hospitalization, Other)
  Sender: FDA-Public Use
  Company Number: PHEH2013US011992

PATIENT
  Age: 55 Year
  Sex: Female

DRUGS (2)
  1. EXFORGE HCT [Suspect]
     Dosage: UNK (VALSARTAN 160MG, AMLODIPINE 5 MG, HYDROCHLOROTHIAZIDE 25 MG), UNK
  2. METOPROLOL [Concomitant]

REACTIONS (1)
  - Hypertension [None]
